FAERS Safety Report 16015523 (Version 2)
Quarter: 2019Q2

REPORT INFORMATION
  Report Type: Spontaneous
  Country: CA (occurrence: CA)
  Receive Date: 20190228
  Receipt Date: 20190415
  Transmission Date: 20190711
  Serious: Yes (Other)
  Sender: FDA-Public Use
  Company Number: CA-CELLTRION INC.-2018CA018423

PATIENT

DRUGS (6)
  1. INFLECTRA [Suspect]
     Active Substance: INFLIXIMAB-DYYB
     Indication: CROHN^S DISEASE
     Dosage: 250 MG, EVERY 0,2,6 AND 8 WEEKS
     Route: 042
     Dates: start: 20180105
  2. INFLECTRA [Suspect]
     Active Substance: INFLIXIMAB-DYYB
     Dosage: 250 MG, EVERY 0,2,6 AND 8 WEEKS
     Route: 042
     Dates: start: 20180927
  3. INFLECTRA [Suspect]
     Active Substance: INFLIXIMAB-DYYB
     Dosage: 250 MG, EVERY 0,2,6 AND 8 WEEKS
     Route: 042
     Dates: start: 20181120, end: 201901
  4. ENTOCORT [Concomitant]
     Active Substance: BUDESONIDE
     Dosage: UNK
     Dates: start: 201709
  5. INFLECTRA [Suspect]
     Active Substance: INFLIXIMAB-DYYB
     Dosage: 250 MG, EVERY 0,2,6 AND 8 WEEKS
     Route: 042
     Dates: start: 20180118
  6. INFLECTRA [Suspect]
     Active Substance: INFLIXIMAB-DYYB
     Dosage: 250 MG, EVERY 0,2,6 AND 8 WEEKS
     Route: 042
     Dates: start: 20180725

REACTIONS (2)
  - Ovarian cancer [Unknown]
  - Condition aggravated [Recovered/Resolved]
